FAERS Safety Report 5231543-9 (Version None)
Quarter: 2007Q1

REPORT INFORMATION
  Report Type: 
  Country: None (occurrence: None)
  Receive Date: 20061201
  Receipt Date: 20060911
  Transmission Date: 20070707
  Serious: No
  Sender: FDA-Public Use
  Company Number: 2006PV021229

PATIENT
  Age: 84 Year
  Sex: Female

DRUGS (11)
  1. BYETTA [Suspect]
     Indication: DRUG USE FOR UNKNOWN INDICATION
     Dosage: SEE IMAGE
     Route: 058
  2. AVANDIA [Concomitant]
  3. METFORMIN HCL [Concomitant]
  4. LOMOTIL [Concomitant]
  5. ATENOLOL [Concomitant]
  6. ZETIA [Concomitant]
  7. PRAVACHOL [Concomitant]
  8. AVAPRO [Concomitant]
  9. ASPIRIN [Concomitant]
  10. ASCORBIC ACID [Concomitant]
  11. STRESS TABS [Concomitant]

REACTIONS (3)
  - BLOOD GLUCOSE INCREASED [None]
  - NAUSEA [None]
  - WEIGHT DECREASED [None]
